FAERS Safety Report 9264496 (Version 1)
Quarter: 2013Q2

REPORT INFORMATION
  Report Type: Spontaneous
  Country: DE (occurrence: DE)
  Receive Date: 20130501
  Receipt Date: 20130501
  Transmission Date: 20140414
  Serious: Yes (Death, Other)
  Sender: FDA-Public Use
  Company Number: CHPA2013DE007391

PATIENT
  Sex: Male

DRUGS (6)
  1. IBUPROFEN [Suspect]
     Indication: ANKYLOSING SPONDYLITIS
     Dosage: 300 MG, QD
     Route: 064
     Dates: start: 20120301, end: 20120925
  2. DAIVOBET [Concomitant]
     Indication: PSORIASIS
     Dosage: UNK
     Route: 064
     Dates: start: 20120201
  3. FOLIO FORTE [Concomitant]
     Indication: PROPHYLAXIS OF NEURAL TUBE DEFECT
     Dosage: 0.8 MG, UNK
     Route: 064
     Dates: start: 20130201
  4. KADEFUNGIN [Concomitant]
     Indication: VULVOVAGINAL MYCOTIC INFECTION
     Dosage: 20 MG, QD
     Route: 064
  5. MIFEGYNE [Concomitant]
     Indication: ABORTION INDUCED
     Dosage: UNK
     Route: 064
     Dates: start: 20120925
  6. CYTOTEC [Concomitant]
     Indication: ABORTION INDUCED
     Dosage: UNK
     Route: 064
     Dates: start: 20120925

REACTIONS (8)
  - Stillbirth [Fatal]
  - Oligohydramnios [Fatal]
  - Foetal growth restriction [Fatal]
  - Ventricular septal defect [Fatal]
  - Skeletal dysplasia [Fatal]
  - Small for dates baby [Fatal]
  - Placental insufficiency [Unknown]
  - Exposure during pregnancy [Unknown]
